FAERS Safety Report 16617235 (Version 1)
Quarter: 2019Q3

REPORT INFORMATION
  Report Type: Spontaneous
  Country: FR (occurrence: FR)
  Receive Date: 20190723
  Receipt Date: 20190723
  Transmission Date: 20191004
  Serious: Yes (Disabling)
  Sender: FDA-Public Use
  Company Number: FR-ASTRAZENECA-2019SF01739

PATIENT
  Age: 72 Year
  Sex: Male
  Weight: 73 kg

DRUGS (6)
  1. CARBOPLATIN. [Concomitant]
     Active Substance: CARBOPLATIN
     Dosage: 730 M, 4 CURES AT A WEEKLY RATE AUC 6
     Route: 041
     Dates: start: 20180910, end: 201903
  2. PACLITAXEL. [Concomitant]
     Active Substance: PACLITAXEL
     Dosage: 156 MG, 4 CURES AT A WEEKLY RATE AUC 6
     Route: 041
     Dates: start: 20180910, end: 201903
  3. ALDACTONE [Concomitant]
     Active Substance: SPIRONOLACTONE
     Route: 048
  4. IMFINZI [Suspect]
     Active Substance: DURVALUMAB
     Indication: LUNG CARCINOMA CELL TYPE UNSPECIFIED STAGE III
     Dosage: 730 MG, EVERY TWO WEEKS, 4 CURES IN TOTAL
     Route: 042
     Dates: start: 20190426, end: 20190617
  5. LEVOTHYROX [Concomitant]
     Active Substance: LEVOTHYROXINE
     Route: 048
  6. FUROSEMIDE. [Concomitant]
     Active Substance: FUROSEMIDE
     Route: 048

REACTIONS (1)
  - Neuropathy peripheral [Not Recovered/Not Resolved]

NARRATIVE: CASE EVENT DATE: 20190510
